FAERS Safety Report 15968681 (Version 5)
Quarter: 2019Q3

REPORT INFORMATION
  Report Type: Spontaneous
  Country: US (occurrence: US)
  Receive Date: 20190215
  Receipt Date: 20190930
  Transmission Date: 20191004
  Serious: Yes (Other)
  Sender: FDA-Public Use
  Company Number: US-ASTRAZENECA-2018SF34917

PATIENT
  Age: 684 Month
  Sex: Female

DRUGS (52)
  1. PRILOSEC OTC [Suspect]
     Active Substance: OMEPRAZOLE MAGNESIUM
     Indication: GASTROOESOPHAGEAL REFLUX DISEASE
     Route: 048
     Dates: start: 20030701
  2. PROTONIX [Suspect]
     Active Substance: PANTOPRAZOLE SODIUM
     Indication: GASTROOESOPHAGEAL REFLUX DISEASE
     Route: 048
     Dates: start: 20130815
  3. DICLOFENAC SODIUM. [Concomitant]
     Active Substance: DICLOFENAC SODIUM
  4. DIAZEPAM. [Concomitant]
     Active Substance: DIAZEPAM
  5. PREVACID 24 HR [Suspect]
     Active Substance: LANSOPRAZOLE
     Indication: GASTROOESOPHAGEAL REFLUX DISEASE
     Route: 065
     Dates: start: 20090101, end: 20180207
  6. INVOKANA [Concomitant]
     Active Substance: CANAGLIFLOZIN
     Indication: TYPE 2 DIABETES MELLITUS
     Dates: start: 20161006, end: 20161107
  7. ONDASETRON [Concomitant]
     Active Substance: ONDANSETRON
  8. ALPRAZOLAM. [Concomitant]
     Active Substance: ALPRAZOLAM
  9. NEXIUM I.V. [Suspect]
     Active Substance: ESOMEPRAZOLE SODIUM
     Route: 042
  10. PRILOSEC OTC [Suspect]
     Active Substance: OMEPRAZOLE MAGNESIUM
     Indication: GASTROOESOPHAGEAL REFLUX DISEASE
     Route: 048
     Dates: start: 2016, end: 2017
  11. PROTONIX [Suspect]
     Active Substance: PANTOPRAZOLE SODIUM
     Indication: GASTROOESOPHAGEAL REFLUX DISEASE
     Route: 065
     Dates: start: 20010202
  12. PROTONIX [Suspect]
     Active Substance: PANTOPRAZOLE SODIUM
     Indication: GASTROOESOPHAGEAL REFLUX DISEASE
     Dosage: GENERIC
     Route: 065
     Dates: start: 20150115, end: 20150914
  13. PROTONIX [Suspect]
     Active Substance: PANTOPRAZOLE SODIUM
     Route: 042
  14. GABAPENTIN. [Concomitant]
     Active Substance: GABAPENTIN
     Indication: PAIN
     Dates: start: 20150216
  15. LORAZEPAM. [Concomitant]
     Active Substance: LORAZEPAM
  16. TIZANIDINE. [Concomitant]
     Active Substance: TIZANIDINE
  17. ESTRACE [Concomitant]
     Active Substance: ESTRADIOL
  18. PREVACID [Suspect]
     Active Substance: LANSOPRAZOLE
     Indication: GASTROOESOPHAGEAL REFLUX DISEASE
     Route: 065
     Dates: start: 20000101, end: 20180207
  19. PROTONIX [Suspect]
     Active Substance: PANTOPRAZOLE SODIUM
     Indication: GASTROOESOPHAGEAL REFLUX DISEASE
     Route: 065
     Dates: start: 20000201, end: 20180207
  20. FLUOXETINE [Concomitant]
     Active Substance: FLUOXETINE HYDROCHLORIDE
     Indication: DEPRESSION
     Dates: start: 20150610, end: 20151021
  21. CRESTOR [Concomitant]
     Active Substance: ROSUVASTATIN CALCIUM
     Indication: BLOOD CHOLESTEROL INCREASED
     Dates: start: 20150804, end: 20150811
  22. METFORMIN [Concomitant]
     Active Substance: METFORMIN HYDROCHLORIDE
     Indication: TYPE 2 DIABETES MELLITUS
     Dates: start: 20160831, end: 20160930
  23. ZANTAC [Concomitant]
     Active Substance: RANITIDINE HYDROCHLORIDE
  24. ASPIRIN. [Concomitant]
     Active Substance: ASPIRIN
  25. MELOXICAM. [Concomitant]
     Active Substance: MELOXICAM
  26. FOLVITE [Concomitant]
     Active Substance: FOLIC ACID
  27. NEXIUM 24HR [Suspect]
     Active Substance: ESOMEPRAZOLE MAGNESIUM
     Indication: GASTROOESOPHAGEAL REFLUX DISEASE
     Route: 048
     Dates: start: 20140328, end: 20180207
  28. PREVACID IV [Suspect]
     Active Substance: LANSOPRAZOLE
     Route: 042
  29. FUROSEMIDE. [Concomitant]
     Active Substance: FUROSEMIDE
     Indication: FLUID RETENTION
     Dates: start: 20150101, end: 201601
  30. AMLODIPINE [Concomitant]
     Active Substance: AMLODIPINE BESYLATE
  31. TRAMADOL. [Concomitant]
     Active Substance: TRAMADOL
  32. CENTRUM [Concomitant]
     Active Substance: VITAMINS
  33. APRESOLINE HYDROCHLORIDE [Concomitant]
     Active Substance: HYDRALAZINE HYDROCHLORIDE
  34. NEXIUM [Suspect]
     Active Substance: ESOMEPRAZOLE MAGNESIUM
     Indication: GASTROOESOPHAGEAL REFLUX DISEASE
     Route: 048
     Dates: start: 20010301, end: 20070301
  35. NEXIUM 24HR [Suspect]
     Active Substance: ESOMEPRAZOLE MAGNESIUM
     Indication: GASTROOESOPHAGEAL REFLUX DISEASE
     Route: 048
     Dates: start: 20140401, end: 20170401
  36. PRILOSEC [Suspect]
     Active Substance: OMEPRAZOLE MAGNESIUM
     Indication: GASTROOESOPHAGEAL REFLUX DISEASE
     Route: 048
     Dates: start: 19900914
  37. FAMOTIDINE. [Concomitant]
     Active Substance: FAMOTIDINE
  38. NEXIUM 24HR [Suspect]
     Active Substance: ESOMEPRAZOLE MAGNESIUM
     Indication: GASTROOESOPHAGEAL REFLUX DISEASE
     Route: 048
     Dates: start: 2015, end: 2016
  39. PREVACID [Suspect]
     Active Substance: LANSOPRAZOLE
     Indication: GASTROOESOPHAGEAL REFLUX DISEASE
     Route: 065
     Dates: start: 19950601, end: 20160601
  40. LEVOTHYROXINE. [Concomitant]
     Active Substance: LEVOTHYROXINE
     Indication: HYPOTHYROIDISM
     Dates: start: 20150130
  41. PREDNISOLONE. [Concomitant]
     Active Substance: PREDNISOLONE
  42. MORPHINE [Concomitant]
     Active Substance: MORPHINE
  43. PERCOCET [Concomitant]
     Active Substance: ACETAMINOPHEN\OXYCODONE HYDROCHLORIDE
  44. PROMETHAZINE [Concomitant]
     Active Substance: PROMETHAZINE HYDROCHLORIDE
  45. NEXIUM [Suspect]
     Active Substance: ESOMEPRAZOLE MAGNESIUM
     Indication: GASTROOESOPHAGEAL REFLUX DISEASE
     Route: 048
     Dates: start: 20010201, end: 20180207
  46. PRILOSEC [Suspect]
     Active Substance: OMEPRAZOLE MAGNESIUM
     Indication: GASTROOESOPHAGEAL REFLUX DISEASE
     Route: 048
     Dates: start: 20000101, end: 20180207
  47. PRILOSEC OTC [Suspect]
     Active Substance: OMEPRAZOLE MAGNESIUM
     Indication: GASTROOESOPHAGEAL REFLUX DISEASE
     Route: 048
     Dates: start: 20030101, end: 20180207
  48. PREVACID 24 HR [Suspect]
     Active Substance: LANSOPRAZOLE
     Indication: GASTROOESOPHAGEAL REFLUX DISEASE
     Route: 065
     Dates: start: 20090601, end: 20170601
  49. PREVACID 24 HR [Suspect]
     Active Substance: LANSOPRAZOLE
     Indication: GASTROOESOPHAGEAL REFLUX DISEASE
     Route: 065
     Dates: start: 2017, end: 2018
  50. LISINOPRIL. [Concomitant]
     Active Substance: LISINOPRIL
  51. BUSPAR [Concomitant]
     Active Substance: BUSPIRONE HYDROCHLORIDE
  52. RESTORIL [Concomitant]
     Active Substance: TEMAZEPAM

REACTIONS (4)
  - Renal injury [Unknown]
  - Renal failure [Unknown]
  - Chronic kidney disease [Unknown]
  - Acute kidney injury [Not Recovered/Not Resolved]

NARRATIVE: CASE EVENT DATE: 201511
